FAERS Safety Report 5626208-5 (Version None)
Quarter: 2008Q1

REPORT INFORMATION
  Report Type: 
  Country: None (occurrence: None)
  Receive Date: 20080214
  Receipt Date: 20080213
  Transmission Date: 20080703
  Serious: Yes (Other)
  Sender: FDA-Public Use
  Company Number: A0709374A

PATIENT
  Age: 52 Year
  Sex: Male

DRUGS (3)
  1. FLONASE [Suspect]
     Indication: SINUS CONGESTION
     Route: 045
     Dates: start: 20000101, end: 20080101
  2. ANTIHISTAMINES [Concomitant]
  3. SINGULAIR [Concomitant]

REACTIONS (2)
  - ABNORMAL SENSATION IN EYE [None]
  - GLAUCOMA [None]
